FAERS Safety Report 8619520-9 (Version None)
Quarter: 2012Q3

REPORT INFORMATION
  Report Type: 
  Country: None (occurrence: None)
  Receive Date: 20120824
  Receipt Date: 20120330
  Transmission Date: 20120928
  Serious: No
  Sender: FDA-Public Use
  Company Number: US-ASTRAZENECA-2012SE21580

PATIENT
  Age: 82 Year
  Sex: Male

DRUGS (8)
  1. PROVENTIL-HFA [Concomitant]
  2. ISOSORBIDE [Concomitant]
  3. CRESTOR [Suspect]
     Route: 048
  4. METFORMIN HCL [Concomitant]
  5. ATENOLOL [Concomitant]
  6. MAG OX [Concomitant]
  7. SYMBICORT [Suspect]
     Dosage: 160/4.5 , TWO PUFFS TWICE A DAY
     Route: 055
  8. RAMIPRIL [Concomitant]

REACTIONS (2)
  - ASTHMA [None]
  - CIRCUMSTANCE OR INFORMATION CAPABLE OF LEADING TO MEDICATION ERROR [None]
